FAERS Safety Report 6194466-7 (Version None)
Quarter: 2009Q2

REPORT INFORMATION
  Report Type: 
  Country: None (occurrence: None)
  Receive Date: 20090514
  Receipt Date: 20090505
  Transmission Date: 20091009
  Serious: Yes (Other)
  Sender: FDA-Public Use
  Company Number: 267744

PATIENT
  Age: 40 Year

DRUGS (1)
  1. METHOTREXATE [Suspect]
     Indication: DRUG USE FOR UNKNOWN INDICATION

REACTIONS (3)
  - BONE MARROW FAILURE [None]
  - DRUG ERUPTION [None]
  - MUCOSAL EROSION [None]
